FAERS Safety Report 23330441 (Version 1)
Quarter: 2023Q4

REPORT INFORMATION
  Report Type: Spontaneous
  Country: US (occurrence: US)
  Receive Date: 20231222
  Receipt Date: 20231222
  Transmission Date: 20240110
  Serious: No
  Sender: FDA-Public Use
  Company Number: MIQ-02132023-1832

PATIENT
  Sex: Female

DRUGS (1)
  1. IVERMECTIN [Suspect]
     Active Substance: IVERMECTIN
     Indication: Cough
     Dosage: UNK
     Route: 048

REACTIONS (3)
  - Pollakiuria [Unknown]
  - Dehydration [Unknown]
  - Off label use [Unknown]
